FAERS Safety Report 8525550-8 (Version None)
Quarter: 2012Q3

REPORT INFORMATION
  Report Type: 
  Country: None (occurrence: None)
  Receive Date: 20120710
  Receipt Date: 20120626
  Transmission Date: 20120928
  Serious: Yes (Other)
  Sender: FDA-Public Use
  Company Number: NGX_01153_2012

PATIENT
  Sex: Male

DRUGS (2)
  1. QUTENZA [Suspect]
     Indication: SCAR
     Dosage: (1 DF, [PATCH] TOPICAL)
     Route: 061
  2. QUTENZA [Suspect]
     Indication: NEURALGIA
     Dosage: (1 DF, [PATCH] TOPICAL)
     Route: 061

REACTIONS (4)
  - ANAPHYLACTIC SHOCK [None]
  - CHILLS [None]
  - APPLICATION SITE ERYTHEMA [None]
  - RASH [None]
